FAERS Safety Report 21833613 (Version 1)
Quarter: 2023Q1

REPORT INFORMATION
  Report Type: Spontaneous
  Country: BR (occurrence: BR)
  Receive Date: 20230107
  Receipt Date: 20230107
  Transmission Date: 20230418
  Serious: Yes (Other)
  Sender: FDA-Public Use
  Company Number: BR-Accord-295467

PATIENT
  Age: 72 Year
  Sex: Male
  Weight: 46.8 kg

DRUGS (7)
  1. PACLITAXEL [Suspect]
     Active Substance: PACLITAXEL
     Indication: Malignant palate neoplasm
     Dates: start: 20221122
  2. CARBOPLATIN [Suspect]
     Active Substance: CARBOPLATIN
     Indication: Malignant palate neoplasm
     Dosage: TIME OF USE UP TO 1ST RAM - 1ST DOSE LAST: 21 DAYS / 6 MIN
     Dates: start: 20221122
  3. SODIUM CHLORIDE [Concomitant]
     Active Substance: SODIUM CHLORIDE
     Indication: Premedication
     Dosage: STRENGTH: 0.9%
  4. DEXCHLORPHENIRAMINE [Concomitant]
     Active Substance: DEXCHLORPHENIRAMINE
     Indication: Premedication
     Dosage: 4MG
  5. GRANISETRON [Concomitant]
     Active Substance: GRANISETRON
     Indication: Premedication
     Dosage: 1MG
  6. CIMETIDINE [Concomitant]
     Active Substance: CIMETIDINE
     Indication: Premedication
     Dosage: 300MG
  7. DEXAMETHASONE [Concomitant]
     Active Substance: DEXAMETHASONE
     Indication: Premedication
     Dosage: 10MG

REACTIONS (4)
  - Hypoxia [Recovered/Resolved]
  - Hypotension [Recovered/Resolved]
  - Dyspnoea [Recovered/Resolved]
  - Off label use [Unknown]

NARRATIVE: CASE EVENT DATE: 20221213
